FAERS Safety Report 7864953-1 (Version None)
Quarter: 2011Q4

REPORT INFORMATION
  Report Type: 
  Country: None (occurrence: None)
  Receive Date: 20111028
  Receipt Date: 20111018
  Transmission Date: 20120403
  Serious: Yes (Hospitalization)
  Sender: FDA-Public Use
  Company Number: US-BAYER-201026690NA

PATIENT
  Age: 30 Year
  Sex: Female
  Weight: 72.562 kg

DRUGS (8)
  1. NEXIUM [Concomitant]
     Dosage: 40 MG, CONT
     Route: 048
  2. YASMIN [Suspect]
     Indication: PREMENSTRUAL SYNDROME
  3. PHENERGAN HCL [Concomitant]
     Dosage: UNK UNK, PRN
  4. KEFLEX [Concomitant]
     Dosage: 500 MG, QID
     Route: 048
  5. YAZ [Suspect]
     Indication: PREMENSTRUAL SYNDROME
  6. YASMIN [Suspect]
     Indication: CONTRACEPTION
     Dosage: UNK UNK, UNK
     Route: 048
     Dates: start: 20030801, end: 20070101
  7. YAZ [Suspect]
     Indication: CONTRACEPTION
     Dosage: UNK UNK, UNK
     Route: 048
     Dates: start: 20070101, end: 20081101
  8. LORTAB [Concomitant]
     Route: 048

REACTIONS (7)
  - BILIARY DYSKINESIA [None]
  - THROMBOPHLEBITIS SUPERFICIAL [None]
  - PAIN [None]
  - DIARRHOEA [None]
  - EMOTIONAL DISTRESS [None]
  - NAUSEA [None]
  - CHOLECYSTITIS CHRONIC [None]
